FAERS Safety Report 7152580-3 (Version None)
Quarter: 2010Q4

REPORT INFORMATION
  Report Type: 
  Country: None (occurrence: None)
  Receive Date: 20101213
  Receipt Date: 20101207
  Transmission Date: 20110411
  Serious: Yes (Death, Other)
  Sender: FDA-Public Use
  Company Number: US-CELGENEUS-163-21880-10120774

PATIENT
  Sex: Female

DRUGS (12)
  1. REVLIMID [Suspect]
     Indication: MULTIPLE MYELOMA
     Route: 048
     Dates: start: 20090401, end: 20091101
  2. REVLIMID [Suspect]
     Route: 048
     Dates: start: 20100301, end: 20100401
  3. PROCRIT [Concomitant]
     Route: 065
  4. PERCOCET [Concomitant]
     Route: 065
  5. ATENOLOL [Concomitant]
     Route: 065
  6. INSULIN [Concomitant]
     Route: 065
  7. ZESTRIL [Concomitant]
     Route: 065
  8. PHENYTOIN [Concomitant]
     Route: 065
  9. GLIPIZIDE [Concomitant]
     Route: 065
  10. CALCITRIOL [Concomitant]
     Route: 065
  11. NORVASC [Concomitant]
     Route: 065
  12. ZOCOR [Concomitant]
     Route: 065

REACTIONS (2)
  - DEATH [None]
  - HAEMOGLOBIN DECREASED [None]
